FAERS Safety Report 4393972-5 (Version None)
Quarter: 2004Q3

REPORT INFORMATION
  Report Type: 
  Country: None (occurrence: None)
  Receive Date: 20040702
  Receipt Date: 20040623
  Transmission Date: 20050211
  Serious: Yes (Hospitalization, Other)
  Sender: FDA-Public Use
  Company Number: 2004042760

PATIENT
  Age: 58 Year
  Sex: Male
  Weight: 102.0593 kg

DRUGS (2)
  1. LIPITOR [Suspect]
     Indication: BLOOD CHOLESTEROL INCREASED
     Dosage: 40 MG (40 MG, 1 IN 1 D) , ORAL
     Route: 048
     Dates: start: 19980101
  2. ALL OTHER THERAPEUTIC PRODUCTS [Concomitant]
     Indication: INFLUENZA
     Dates: start: 20020101, end: 20020101

REACTIONS (8)
  - DIFFICULTY IN WALKING [None]
  - FLUID RETENTION [None]
  - INFLUENZA [None]
  - JAUNDICE [None]
  - METABOLIC DISORDER [None]
  - ORGAN FAILURE [None]
  - PULMONARY OEDEMA [None]
  - RENAL DISORDER [None]
